FAERS Safety Report 8936569 (Version 1)
Quarter: 2012Q4

REPORT INFORMATION
  Report Type: 
  Country: GB (occurrence: GB)
  Receive Date: 20121130
  Receipt Date: 20121130
  Transmission Date: 20130627
  Serious: Yes (Other)
  Sender: FDA-Public Use
  Company Number: GB-WATSON-2012-20673

PATIENT
  Age: 23 Year
  Sex: Female
  Weight: 90 kg

DRUGS (1)
  1. DOXYCYCLINE (UNKNOWN) [Suspect]
     Indication: ACNE
     Dosage: 100 mg, daily
     Route: 048
     Dates: start: 20121031, end: 20121102

REACTIONS (2)
  - Dyspepsia [Recovered/Resolved with Sequelae]
  - Oesophageal irritation [Recovered/Resolved with Sequelae]
